FAERS Safety Report 10618931 (Version 1)
Quarter: 2014Q4

REPORT INFORMATION
  Report Type: Spontaneous
  Country: ES (occurrence: None)
  Receive Date: 20141126
  Receipt Date: 20141126
  Transmission Date: 20150529
  Serious: Yes (Hospitalization)
  Sender: FDA-Public Use
  Company Number: IMP_08223_2014

PATIENT
  Age: 66 Year
  Sex: Female

DRUGS (6)
  1. BACLOFEN. [Suspect]
     Active Substance: BACLOFEN
     Indication: MUSCLE SPASMS
     Route: 048
     Dates: start: 1995
  2. BIMATOPROST. [Concomitant]
     Active Substance: BIMATOPROST
  3. ASA [Concomitant]
     Active Substance: ASPIRIN
  4. OMEPRAZOLE. [Concomitant]
     Active Substance: OMEPRAZOLE
  5. SOLIFENACIN [Concomitant]
     Active Substance: SOLIFENACIN
  6. LORAZEPAM. [Concomitant]
     Active Substance: LORAZEPAM

REACTIONS (13)
  - Disorientation [None]
  - Infection [None]
  - Loss of consciousness [None]
  - Glaucoma [None]
  - Urinary tract infection [None]
  - Encephalopathy [None]
  - Thrombosis [None]
  - Insomnia [None]
  - Dysarthria [None]
  - Dystonia [None]
  - Urinary incontinence [None]
  - Neurological symptom [None]
  - Confusional state [None]
